FAERS Safety Report 8281398-3 (Version None)
Quarter: 2012Q2

REPORT INFORMATION
  Report Type: 
  Country: None (occurrence: None)
  Receive Date: 20120410
  Receipt Date: 20120410
  Transmission Date: 20120825
  Serious: Yes (Other)
  Sender: FDA-Public Use
  Company Number: None

PATIENT
  Sex: Female
  Weight: 113.1725 kg

DRUGS (1)
  1. BACLOFEN [Suspect]
     Indication: TARDIVE DYSKINESIA
     Dosage: 10 MG 1/2 TAB 3 X DAY ORAL
     Route: 048
     Dates: start: 20100929, end: 20110728

REACTIONS (1)
  - DRUG WITHDRAWAL SYNDROME [None]
